FAERS Safety Report 9201151 (Version 1)
Quarter: 2013Q2

REPORT INFORMATION
  Report Type: Spontaneous
  Country: CH (occurrence: CH)
  Receive Date: 20130401
  Receipt Date: 20130401
  Transmission Date: 20140414
  Serious: Yes (Hospitalization)
  Sender: FDA-Public Use
  Company Number: PHHY2013CH028956

PATIENT
  Age: 58 Year
  Sex: Male

DRUGS (7)
  1. EXFORGE HCT [Suspect]
     Indication: MYOCARDIAL ISCHAEMIA
     Dosage: 1 DF (160 MG VALS/5 MG AMLO/25 MG HCT), QD
     Route: 048
     Dates: start: 201302, end: 20130303
  2. QUILONORM [Suspect]
     Indication: BIPOLAR DISORDER
     Dosage: 450 UG, BID
     Route: 048
     Dates: start: 1970, end: 20130303
  3. TEMESTA//LORAZEPAM [Concomitant]
     Dosage: 1 MG, DAILY
  4. PLAVIX [Concomitant]
     Dosage: 75 MG, QD
  5. SORBIDILAT [Concomitant]
     Dosage: 20 MG, DAILY
  6. MEPHANOL-100 [Concomitant]
     Dosage: 100 MG, DAILY
  7. CITALOPRAM MEPHA [Concomitant]
     Dosage: 0.5 DF (40 MG), BID

REACTIONS (4)
  - Muscle spasticity [Recovered/Resolved]
  - Hyperreflexia [Recovered/Resolved]
  - Drug level increased [Recovered/Resolved]
  - Renal failure acute [Recovered/Resolved]
